FAERS Safety Report 26131665 (Version 1)
Quarter: 2025Q4

REPORT INFORMATION
  Report Type: Spontaneous
  Country: EU (occurrence: EU)
  Receive Date: 20251208
  Receipt Date: 20251208
  Transmission Date: 20260117
  Serious: Yes (Other)
  Sender: MYLAN
  Company Number: None

PATIENT
  Age: 60 Year
  Sex: Male
  Weight: 103 kg

DRUGS (20)
  1. DOXAZOSIN [Interacting]
     Active Substance: DOXAZOSIN MESYLATE
     Indication: Blood pressure management
     Dosage: 8 MILLIGRAM, QD (1 TABLET ONCE A DAY)
     Dates: start: 20190328, end: 20251121
  2. DOXAZOSIN [Interacting]
     Active Substance: DOXAZOSIN MESYLATE
     Dosage: 8 MILLIGRAM, QD (1 TABLET ONCE A DAY)
     Route: 065
     Dates: start: 20190328, end: 20251121
  3. DOXAZOSIN [Interacting]
     Active Substance: DOXAZOSIN MESYLATE
     Dosage: 8 MILLIGRAM, QD (1 TABLET ONCE A DAY)
     Route: 065
     Dates: start: 20190328, end: 20251121
  4. DOXAZOSIN [Interacting]
     Active Substance: DOXAZOSIN MESYLATE
     Dosage: 8 MILLIGRAM, QD (1 TABLET ONCE A DAY)
     Dates: start: 20190328, end: 20251121
  5. MOUNJARO [Interacting]
     Active Substance: TIRZEPATIDE
     Indication: Obesity
     Dosage: 5 QD (ONCE A WEEK) (STREGNTH 5MILLIGRAM PER DOSE)
     Dates: start: 20250817
  6. MOUNJARO [Interacting]
     Active Substance: TIRZEPATIDE
     Dosage: 5 QD (ONCE A WEEK) (STREGNTH 5MILLIGRAM PER DOSE)
     Route: 042
     Dates: start: 20250817
  7. MOUNJARO [Interacting]
     Active Substance: TIRZEPATIDE
     Dosage: 5 QD (ONCE A WEEK) (STREGNTH 5MILLIGRAM PER DOSE)
     Route: 042
     Dates: start: 20250817
  8. MOUNJARO [Interacting]
     Active Substance: TIRZEPATIDE
     Dosage: 5 QD (ONCE A WEEK) (STREGNTH 5MILLIGRAM PER DOSE)
     Dates: start: 20250817
  9. TALTZ [Concomitant]
     Active Substance: IXEKIZUMAB
     Dosage: UNK
  10. TALTZ [Concomitant]
     Active Substance: IXEKIZUMAB
     Dosage: UNK
     Route: 065
  11. TALTZ [Concomitant]
     Active Substance: IXEKIZUMAB
     Dosage: UNK
     Route: 065
  12. TALTZ [Concomitant]
     Active Substance: IXEKIZUMAB
     Dosage: UNK
  13. HYDROCHLOROTHIAZIDE [Concomitant]
     Active Substance: HYDROCHLOROTHIAZIDE
     Dosage: UNK
  14. HYDROCHLOROTHIAZIDE [Concomitant]
     Active Substance: HYDROCHLOROTHIAZIDE
     Dosage: UNK
     Route: 065
  15. HYDROCHLOROTHIAZIDE [Concomitant]
     Active Substance: HYDROCHLOROTHIAZIDE
     Dosage: UNK
     Route: 065
  16. HYDROCHLOROTHIAZIDE [Concomitant]
     Active Substance: HYDROCHLOROTHIAZIDE
     Dosage: UNK
  17. CANDESARTAN [Concomitant]
     Active Substance: CANDESARTAN
     Dosage: UNK
  18. CANDESARTAN [Concomitant]
     Active Substance: CANDESARTAN
     Dosage: UNK
     Route: 065
  19. CANDESARTAN [Concomitant]
     Active Substance: CANDESARTAN
     Dosage: UNK
     Route: 065
  20. CANDESARTAN [Concomitant]
     Active Substance: CANDESARTAN
     Dosage: UNK

REACTIONS (3)
  - Arrhythmia [Recovered/Resolved]
  - Blood pressure decreased [Recovered/Resolved]
  - Drug interaction [Recovered/Resolved]

NARRATIVE: CASE EVENT DATE: 20250928
